FAERS Safety Report 17183295 (Version 1)
Quarter: 2019Q4

REPORT INFORMATION
  Report Type: Spontaneous
  Country: US (occurrence: US)
  Receive Date: 20191220
  Receipt Date: 20191220
  Transmission Date: 20200122
  Serious: Yes (Other)
  Sender: FDA-Public Use
  Company Number: US-ELI_LILLY_AND_COMPANY-US201912005452

PATIENT
  Age: 64 Year
  Sex: Male

DRUGS (2)
  1. ALIMTA [Suspect]
     Active Substance: PEMETREXED DISODIUM
     Indication: LUNG NEOPLASM MALIGNANT
     Dosage: UNK, UNKNOWN
     Route: 065
     Dates: start: 2017
  2. CISPLATIN. [Concomitant]
     Active Substance: CISPLATIN
     Indication: LUNG NEOPLASM MALIGNANT
     Dosage: UNK, UNKNOWN
     Route: 065

REACTIONS (8)
  - Confusional state [Unknown]
  - Hallucination, auditory [Unknown]
  - Delirium [Unknown]
  - Neuropathy peripheral [Unknown]
  - Self-injurious ideation [Unknown]
  - Violence-related symptom [Unknown]
  - Chest pain [Unknown]
  - Paranoia [Unknown]
